FAERS Safety Report 4758577-2 (Version None)
Quarter: 2005Q3

REPORT INFORMATION
  Report Type: 
  Country: None (occurrence: None)
  Receive Date: 20050901
  Receipt Date: 20050822
  Transmission Date: 20060218
  Serious: Yes (Other)
  Sender: FDA-Public Use
  Company Number: US-JNJFOC-20030805640

PATIENT
  Age: 45 Year
  Sex: Female

DRUGS (2)
  1. TOPAMAX [Suspect]
     Indication: DRUG THERAPY
     Route: 048
  2. TOPROL-XL [Suspect]
     Indication: DRUG USE FOR UNKNOWN INDICATION
     Route: 048

REACTIONS (5)
  - DRUG DISPENSING ERROR [None]
  - HALLUCINATION [None]
  - MEDICATION ERROR [None]
  - RESUSCITATION [None]
  - SUICIDE ATTEMPT [None]
